FAERS Safety Report 6913171-X (Version None)
Quarter: 2010Q3

REPORT INFORMATION
  Report Type: 
  Country: None (occurrence: None)
  Receive Date: 20100806
  Receipt Date: 20100315
  Transmission Date: 20110219
  Serious: No
  Sender: FDA-Public Use
  Company Number: US-PFIZER INC-2008049036

PATIENT
  Sex: Male
  Weight: 95.3 kg

DRUGS (9)
  1. GLIPIZIDE [Suspect]
     Indication: TYPE 2 DIABETES MELLITUS
     Dosage: 5 MG, 1X/DAY
  2. GLUCOPHAGE [Concomitant]
  3. CELEBREX [Concomitant]
  4. HYDROCHLOROTHIAZIDE [Concomitant]
  5. NIASPAN [Concomitant]
  6. ACETYLSALICYLIC ACID [Concomitant]
  7. ENALAPRIL [Concomitant]
  8. ATENOLOL [Concomitant]
  9. ZOCOR [Concomitant]

REACTIONS (1)
  - BLOOD GLUCOSE INCREASED [None]
